FAERS Safety Report 9565535 (Version 2)
Quarter: 2013Q3

REPORT INFORMATION
  Report Type: Report from Study
  Country: US (occurrence: US)
  Receive Date: 20130930
  Receipt Date: 20130930
  Transmission Date: 20140515
  Serious: Yes (Other)
  Sender: FDA-Public Use
  Company Number: US-DENDREON CORPORATION-2013PROUSA03161

PATIENT
  Age: 62 Year
  Sex: Male
  Weight: 149.66 kg

DRUGS (10)
  1. SIPULEUCEL-T [Suspect]
     Indication: PROSTATE CANCER METASTATIC
     Dosage: 250 ML, SINGLE
     Route: 042
     Dates: start: 20130711, end: 20130711
  2. SIPULEUCEL-T [Suspect]
     Dosage: 250 ML, SINGLE
     Route: 042
     Dates: start: 20130725, end: 20130725
  3. SIPULEUCEL-T [Suspect]
     Dosage: 250 ML, SINGLE
     Route: 042
     Dates: start: 20130808, end: 20130808
  4. COUMADIN [Concomitant]
     Dosage: 5 MG, UNK
  5. VERAPAMIL [Concomitant]
     Indication: HYPERTENSION
     Dosage: 240 MG, UNK
  6. LOZOL [Concomitant]
     Indication: DIURETIC THERAPY
  7. METOPROLOL [Concomitant]
     Indication: HYPERTENSION
     Dosage: 25 MG, UNK
  8. LISINOPRIL [Concomitant]
     Indication: HYPERTENSION
     Dosage: 10 MG, UNK
  9. ASPIRIN [Concomitant]
     Indication: PROPHYLAXIS
     Dosage: 325 MG, UNK
  10. ASPIRIN [Concomitant]
     Indication: PAIN

REACTIONS (1)
  - Transient ischaemic attack [Recovered/Resolved]
